FAERS Safety Report 8818557 (Version 1)
Quarter: 2012Q4

REPORT INFORMATION
  Report Type: 
  Country: US (occurrence: US)
  Receive Date: 20121002
  Receipt Date: 20121002
  Transmission Date: 20130627
  Serious: No
  Sender: FDA-Public Use
  Company Number: US-COVIDIEN/TYCO HEALTHCARE/MALLINCKRODT-T201102375

PATIENT
  Sex: Male

DRUGS (11)
  1. EXALGO EXTENDED RELEASE [Suspect]
     Indication: BACK PAIN
     Dosage: 2 tablets qd, one dose taken
     Route: 048
     Dates: start: 20111019
  2. EXALGO EXTENDED RELEASE [Suspect]
     Indication: PAIN IN EXTREMITY
  3. ENDOCET [Concomitant]
     Dosage: 5/325 mg, bid
     Dates: end: 20111019
  4. ASPIRIN [Concomitant]
     Dosage: 81 mg, 2 tablets qd
     Route: 048
  5. HYDROCHLOROTHIAZIDE [Concomitant]
     Dosage: 25 mg, qd
  6. NEXIUM                             /01479302/ [Concomitant]
     Dosage: 40 mg, qd
  7. NIASPAN [Concomitant]
     Indication: BLOOD CHOLESTEROL INCREASED
     Dosage: 750 UNK, qd
  8. TRICOR                             /00499301/ [Concomitant]
     Indication: BLOOD TRIGLYCERIDES INCREASED
     Dosage: 145 mg, qd
  9. CELEXA                             /00582602/ [Concomitant]
     Dosage: 40 mg, qd
  10. DIAZEPAM [Concomitant]
     Dosage: 5 mg, qd
  11. CARVEDILOL [Suspect]
     Dosage: 6.5 mg, qd

REACTIONS (8)
  - Cold sweat [Recovered/Resolved]
  - Headache [Recovered/Resolved]
  - Tremor [Recovered/Resolved]
  - Insomnia [Not Recovered/Not Resolved]
  - Pruritus [Not Recovered/Not Resolved]
  - Rash erythematous [Not Recovered/Not Resolved]
  - Chills [Recovered/Resolved]
  - Feeling abnormal [Not Recovered/Not Resolved]
